FAERS Safety Report 24163526 (Version 1)
Quarter: 2024Q3

REPORT INFORMATION
  Report Type: Spontaneous
  Country: US (occurrence: US)
  Receive Date: 20240801
  Receipt Date: 20240801
  Transmission Date: 20241016
  Serious: No
  Sender: BRISTOL MYERS SQUIBB
  Company Number: US-BRISTOL-MYERS SQUIBB COMPANY-2024-121779

PATIENT
  Age: 46 Year
  Sex: Male

DRUGS (4)
  1. ZEPOSIA [Suspect]
     Active Substance: OZANIMOD HYDROCHLORIDE
     Indication: Product used for unknown indication
  2. TYLENOL [Concomitant]
     Active Substance: ACETAMINOPHEN
     Indication: Performance enhancing product use
  3. IBUPROFEN [Concomitant]
     Active Substance: IBUPROFEN
     Indication: Performance enhancing product use
  4. PHENYTOIN [Concomitant]
     Active Substance: PHENYTOIN
     Indication: Performance enhancing product use

REACTIONS (1)
  - Drug ineffective [Unknown]
